FAERS Safety Report 4477475-5 (Version None)
Quarter: 2004Q4

REPORT INFORMATION
  Report Type: 
  Country: None (occurrence: None)
  Receive Date: 20041004
  Receipt Date: 20040923
  Transmission Date: 20050328
  Serious: Yes (Life-Threatening, Hospitalization, Disabling, Other)
  Sender: FDA-Public Use
  Company Number: 2004-112645-NL

PATIENT
  Age: 62 Year
  Sex: Male
  Weight: 72.7 kg

DRUGS (8)
  1. TICE BCG [Suspect]
     Indication: BLADDER CANCER
     Dosage: DF INTRAVESICAL, 1 VIAL IN 50CC NSS X 12 INSTILLATIONS
     Route: 043
     Dates: start: 19980101, end: 19980101
  2. TICE BCG [Suspect]
     Indication: BLADDER CANCER
     Dosage: DF INTRAVESICAL, 6-MONTHLY MAINTENANCE DOSES
     Route: 043
     Dates: start: 19990101
  3. COUMADIN [Concomitant]
  4. PROTONIX [Concomitant]
  5. MS CONTIN [Concomitant]
  6. GLUCOTROL [Concomitant]
  7. ZOCORD [Concomitant]
  8. LIPITOR [Concomitant]

REACTIONS (12)
  - ANEURYSM [None]
  - AORTIC ANEURYSM [None]
  - BIOPSY BONE ABNORMAL [None]
  - BLADDER CANCER [None]
  - BONE NEOPLASM [None]
  - BONE TUBERCULOSIS [None]
  - CEREBROVASCULAR ACCIDENT [None]
  - GLYCOPEPTIDE ANTIBIOTIC RESISTANT ENTEROCOCCAL INFECTION [None]
  - GRANULOMA ANNULARE [None]
  - INFECTION [None]
  - INTERVERTEBRAL DISC COMPRESSION [None]
  - POSTOPERATIVE WOUND COMPLICATION [None]
